FAERS Safety Report 8595742-0 (Version None)
Quarter: 2012Q3

REPORT INFORMATION
  Report Type: 
  Country: None (occurrence: None)
  Receive Date: 20120815
  Receipt Date: 20111118
  Transmission Date: 20120928
  Serious: Yes (Other)
  Sender: FDA-Public Use
  Company Number: US-ROCHE-1014683

PATIENT
  Sex: Female

DRUGS (4)
  1. SEROQUEL [Concomitant]
  2. PRISTIQ [Concomitant]
     Indication: DEPRESSION
  3. TRAZODONE HYDROCHLORIDE [Concomitant]
  4. KLONOPIN [Suspect]
     Indication: ANXIETY
     Route: 048

REACTIONS (18)
  - DROOLING [None]
  - CONSTIPATION [None]
  - ABNORMAL BEHAVIOUR [None]
  - DRUG INEFFECTIVE [None]
  - AMNESIA [None]
  - NASAL CONGESTION [None]
  - DIZZINESS [None]
  - RHINORRHOEA [None]
  - TRANSIENT ISCHAEMIC ATTACK [None]
  - INSOMNIA [None]
  - PALLOR [None]
  - SOMNOLENCE [None]
  - SUICIDAL IDEATION [None]
  - INCREASED TENDENCY TO BRUISE [None]
  - CARDIAC FLUTTER [None]
  - HEADACHE [None]
  - MUSCULAR WEAKNESS [None]
  - VISION BLURRED [None]
